FAERS Safety Report 5662390-1 (Version None)
Quarter: 2008Q1

REPORT INFORMATION
  Report Type: 
  Country: None (occurrence: None)
  Receive Date: 20080310
  Receipt Date: 20080228
  Transmission Date: 20080703
  Serious: Yes (Hospitalization)
  Sender: FDA-Public Use
  Company Number: 20074461

PATIENT

DRUGS (1)
  1. LIORESAL [Suspect]
     Indication: MUSCLE SPASTICITY
     Dosage: 145 MCG, DAILY, INTRATHECAL
     Route: 037

REACTIONS (2)
  - MEDICAL DEVICE COMPLICATION [None]
  - PNEUMONIA [None]
